FAERS Safety Report 8790231 (Version 2)
Quarter: 2012Q4

REPORT INFORMATION
  Report Type: 
  Country: US (occurrence: US)
  Receive Date: 20120917
  Receipt Date: 20121011
  Transmission Date: 20130627
  Serious: Yes (Other)
  Sender: FDA-Public Use
  Company Number: US-BAYER-2012-093873

PATIENT
  Age: 40 Year
  Sex: Female

DRUGS (2)
  1. MIRENA [Suspect]
     Indication: CONTRACEPTION
     Dosage: 20 mcg/24hr, CONT
     Route: 015
     Dates: start: 20120815, end: 20120902
  2. MIRENA [Suspect]
     Indication: DYSFUNCTIONAL UTERINE BLEEDING

REACTIONS (2)
  - Vaginal haemorrhage [None]
  - Device expulsion [None]
